FAERS Safety Report 17028888 (Version 13)
Quarter: 2020Q2

REPORT INFORMATION
  Report Type: Report from Study
  Country: CA (occurrence: CA)
  Receive Date: 20191114
  Receipt Date: 20200615
  Transmission Date: 20200713
  Serious: Yes (Other)
  Sender: FDA-Public Use
  Company Number: NVSC2019CA014913

PATIENT
  Age: 66 Year
  Sex: Female

DRUGS (5)
  1. CORTISONE [Concomitant]
     Active Substance: CORTISONE
     Indication: PRODUCT USED FOR UNKNOWN INDICATION
     Dosage: UNK
     Route: 058
  2. QUETIAPINE. [Concomitant]
     Active Substance: QUETIAPINE
     Indication: ANXIETY
     Dosage: UNK
     Route: 065
  3. COSENTYX [Suspect]
     Active Substance: SECUKINUMAB
     Indication: PSORIATIC ARTHROPATHY
     Dosage: 300 MG, QMO
     Route: 058
     Dates: start: 20191003
  4. AMLODIPINE [Concomitant]
     Active Substance: AMLODIPINE BESYLATE
     Indication: HYPERTENSION
     Dosage: UNK UNK, QD
     Route: 065
  5. GLUCOSAMINE [Concomitant]
     Active Substance: GLUCOSAMINE
     Indication: PRODUCT USED FOR UNKNOWN INDICATION
     Dosage: UNK
     Route: 065
     Dates: start: 201909

REACTIONS (28)
  - Headache [Not Recovered/Not Resolved]
  - Arthritis [Unknown]
  - Nasopharyngitis [Not Recovered/Not Resolved]
  - Respiratory failure [Unknown]
  - Dyspnoea [Unknown]
  - Fatigue [Not Recovered/Not Resolved]
  - Feeling cold [Unknown]
  - Bursitis [Unknown]
  - Red blood cell sedimentation rate abnormal [Unknown]
  - Flatulence [Unknown]
  - Hypothermia [Unknown]
  - C-reactive protein abnormal [Unknown]
  - Depressed mood [Unknown]
  - Hypersensitivity [Unknown]
  - Genital herpes [Unknown]
  - Tremor [Unknown]
  - Amnesia [Unknown]
  - Peripheral swelling [Unknown]
  - Disturbance in attention [Unknown]
  - Urticaria [Unknown]
  - Drug ineffective [Unknown]
  - Nausea [Not Recovered/Not Resolved]
  - Inflammation [Unknown]
  - Spinal osteoarthritis [Unknown]
  - Malaise [Unknown]
  - Arthralgia [Recovering/Resolving]
  - Asthenia [Unknown]
  - Pain [Unknown]

NARRATIVE: CASE EVENT DATE: 2019
